FAERS Safety Report 5648972-1 (Version None)
Quarter: 2008Q1

REPORT INFORMATION
  Report Type: 
  Country: None (occurrence: None)
  Receive Date: 20080304
  Receipt Date: 20080205
  Transmission Date: 20080703
  Serious: No
  Sender: FDA-Public Use
  Company Number: US-BAYER-200813470NA

PATIENT
  Age: 41 Year
  Sex: Female

DRUGS (1)
  1. MAGNEVIST PHARMACY BULK PACKAGE 50 ML VIAL [Suspect]
     Indication: NUCLEAR MAGNETIC RESONANCE IMAGING
     Route: 042
     Dates: start: 20080205, end: 20080205

REACTIONS (2)
  - ERYTHEMA [None]
  - PRURITUS [None]
